FAERS Safety Report 23362245 (Version 1)
Quarter: 2024Q1

REPORT INFORMATION
  Report Type: Spontaneous
  Country: US (occurrence: None)
  Receive Date: 20240102
  Receipt Date: 20240102
  Transmission Date: 20240409
  Serious: Yes (Death)
  Sender: FDA-Public Use
  Company Number: None

PATIENT
  Age: 81 Year
  Sex: Male

DRUGS (1)
  1. OCTREOTIDE [Suspect]
     Active Substance: OCTREOTIDE
     Indication: Chylothorax
     Dosage: 1ML THREE TIMES DAILY SUBCUTANEOUS?
     Route: 058
     Dates: start: 202310

REACTIONS (1)
  - Death [None]

NARRATIVE: CASE EVENT DATE: 20231129
